FAERS Safety Report 18751714 (Version 1)
Quarter: 2021Q1

REPORT INFORMATION
  Report Type: Spontaneous
  Country: CN (occurrence: CN)
  Receive Date: 20210118
  Receipt Date: 20210118
  Transmission Date: 20210419
  Serious: Yes (Other)
  Sender: FDA-Public Use
  Company Number: CN-SA-2021SA012278

PATIENT
  Age: 49 Year
  Sex: Female
  Weight: 40 kg

DRUGS (2)
  1. APIDRA [Suspect]
     Active Substance: INSULIN GLULISINE
     Dosage: 8?6?8 U TID
     Route: 058
  2. APIDRA [Suspect]
     Active Substance: INSULIN GLULISINE
     Dosage: 10?8?10 U H THREE TIMES A DAY
     Route: 058
     Dates: start: 20201215, end: 20201218

REACTIONS (9)
  - Palpitations [Recovering/Resolving]
  - Asthenia [Recovering/Resolving]
  - Tremor [Recovering/Resolving]
  - Diabetes mellitus [Recovering/Resolving]
  - Hunger [Recovering/Resolving]
  - Discomfort [Recovering/Resolving]
  - Hypoglycaemia [Recovering/Resolving]
  - Dizziness [Recovering/Resolving]
  - Hyperhidrosis [Recovering/Resolving]

NARRATIVE: CASE EVENT DATE: 20201218
